FAERS Safety Report 9696663 (Version 1)
Quarter: 2013Q4

REPORT INFORMATION
  Report Type: Spontaneous
  Country: US (occurrence: None)
  Receive Date: 20131115
  Receipt Date: 20131115
  Transmission Date: 20140711
  Serious: Yes (Hospitalization)
  Sender: FDA-Public Use
  Company Number: IMP_06876_2013

PATIENT
  Age: 59 Year
  Sex: Female

DRUGS (1)
  1. BUPROPION [Suspect]
     Indication: MAJOR DEPRESSION
     Dates: start: 20110707, end: 20110712

REACTIONS (2)
  - Speech disorder [None]
  - Dysphemia [None]
